FAERS Safety Report 9258813 (Version 1)
Quarter: 2013Q2

REPORT INFORMATION
  Report Type: Spontaneous
  Country: GB (occurrence: GB)
  Receive Date: 20130426
  Receipt Date: 20130426
  Transmission Date: 20140414
  Serious: Yes (Other)
  Sender: FDA-Public Use
  Company Number: GB-TEVA-400131ISR

PATIENT
  Age: 76 Year
  Sex: Male

DRUGS (4)
  1. VINCRISTINE [Suspect]
     Indication: B-CELL LYMPHOMA
     Route: 065
  2. PREDNISOLONE [Suspect]
     Indication: B-CELL LYMPHOMA
     Route: 065
  3. MABTHERA [Suspect]
     Indication: B-CELL LYMPHOMA
     Dosage: 4 CYCLES
     Route: 065
  4. CYCLOPHOSPHAMIDE [Suspect]
     Indication: B-CELL LYMPHOMA
     Route: 065

REACTIONS (3)
  - Pneumonitis [Unknown]
  - Dyspnoea [Unknown]
  - Cough [Unknown]
